FAERS Safety Report 5477299-6 (Version None)
Quarter: 2007Q4

REPORT INFORMATION
  Report Type: 
  Country: None (occurrence: None)
  Receive Date: 20071004
  Receipt Date: 20070926
  Transmission Date: 20080405
  Serious: Yes (Death)
  Sender: FDA-Public Use
  Company Number: ES-SHR-ES-2007-036238

PATIENT
  Age: 60 Year
  Sex: Female

DRUGS (3)
  1. FLUDARA (UNK. FORMULATION) [Suspect]
     Indication: B-CELL LYMPHOMA STAGE IV
     Dosage: 25 MG/M2, CYCLES
  2. CYCLOPHOSPHAMIDE [Suspect]
     Indication: B-CELL LYMPHOMA STAGE IV
     Dosage: 1000 MG/M2 1X/DAY
  3. RITUXIMAB [Suspect]
     Indication: B-CELL LYMPHOMA STAGE IV
     Dosage: 375 MG/M2, 1X/DAY

REACTIONS (1)
  - ACUTE MYELOID LEUKAEMIA [None]
